FAERS Safety Report 9066510 (Version 1)
Quarter: 2013Q1

REPORT INFORMATION
  Report Type: Spontaneous
  Country: US (occurrence: US)
  Receive Date: 20130214
  Receipt Date: 20130214
  Transmission Date: 20140127
  Serious: Yes (Death)
  Sender: FDA-Public Use
  Company Number: US-BANPHARM-20130718

PATIENT
  Age: 39 Year
  Sex: Male

DRUGS (8)
  1. IBUPROFEN UNKNOWN PRODUCT [Suspect]
     Route: 048
  2. ACETAMINOPHEN AND DIPHENHYDRAMINE HCI [Suspect]
     Route: 048
  3. LORAZEPAM [Suspect]
     Route: 048
  4. ALPRAZOLAM [Suspect]
     Route: 048
  5. ETHANOL [Suspect]
     Route: 048
  6. ANDROGENS [Suspect]
  7. NANDROLONE [Suspect]
  8. METAXALONE [Suspect]

REACTIONS (1)
  - Completed suicide [Fatal]
